FAERS Safety Report 14755076 (Version 1)
Quarter: 2018Q2

REPORT INFORMATION
  Report Type: Spontaneous
  Country: US (occurrence: ES)
  Receive Date: 20180413
  Receipt Date: 20180413
  Transmission Date: 20180711
  Serious: Yes (Hospitalization, Other)
  Sender: FDA-Public Use
  Company Number: US-ALKEM LABORATORIES LIMITED-ES-ALKEM-2018-01891

PATIENT
  Age: 2 Year
  Sex: Female

DRUGS (1)
  1. MYCOPHENOLATE MOFETIL. [Suspect]
     Active Substance: MYCOPHENOLATE MOFETIL
     Indication: PRODUCT USED FOR UNKNOWN INDICATION
     Dosage: 30 MG, BID, 12 HOUR
     Route: 065

REACTIONS (2)
  - Toxicity to various agents [Recovered/Resolved]
  - Agranulocytosis [Recovered/Resolved]
